FAERS Safety Report 8334130-9 (Version None)
Quarter: 2012Q2

REPORT INFORMATION
  Report Type: 
  Country: None (occurrence: None)
  Receive Date: 20120503
  Receipt Date: 20120316
  Transmission Date: 20120825
  Serious: Yes (Hospitalization, Other)
  Sender: FDA-Public Use
  Company Number: US-ROCHE-432363

PATIENT
  Sex: Female
  Weight: 52.2 kg

DRUGS (24)
  1. ACCUTANE [Suspect]
     Dosage: ACCUTANE INCREASED TO 80MG EVERY THIRD DAY.
     Route: 048
     Dates: start: 19970408, end: 19970509
  2. ACCUTANE [Suspect]
     Route: 048
     Dates: start: 19980223, end: 19980325
  3. EMBELINE E [Concomitant]
     Indication: ECZEMA
     Dosage: APPLIED TO HANDS.
     Route: 061
  4. DERMATOP [Concomitant]
     Indication: CHEILITIS
  5. ARISTOCORT A [Concomitant]
     Indication: ECZEMA
     Route: 061
  6. CLARAVIS [Concomitant]
     Indication: PRODUCT USED FOR UNKNOWN INDICATION
  7. TRIAZ [Concomitant]
     Dosage: DOSING REGIMEN REPORTED AS QHS.
     Route: 061
  8. CUTIVATE [Concomitant]
     Indication: ECZEMA
     Dosage: REPORTED INDICATION INCLUDED BOTH DRY LIPS AND ECZEMA.
     Route: 061
  9. ACCUTANE [Suspect]
     Indication: ACNE CYSTIC
     Route: 048
     Dates: start: 19970113, end: 19970408
  10. ACCUTANE [Suspect]
     Route: 048
     Dates: start: 19970711, end: 19970810
  11. ACCUTANE [Suspect]
     Route: 048
     Dates: start: 19980727, end: 19980923
  12. DECADRON [Concomitant]
     Indication: DRY EYE
     Route: 047
  13. THERAMYCIN Z [Concomitant]
     Indication: FOLLICULITIS
     Route: 061
  14. CYCLOCORT [Concomitant]
     Indication: ASTEATOSIS
     Dosage: APPLIED TO FOREARMS.
     Route: 061
  15. WESTCORT [Concomitant]
     Indication: CHEILITIS
     Route: 061
  16. EUCERIN PRODUCT NOS [Concomitant]
     Dosage: DOSING REGIMEN REPORTED AS AFTER SHOWER TO ARMS AND FOREARMS.
     Route: 061
  17. ACCUTANE [Suspect]
     Dosage: 40MG ONCE DAILY ALTERNATING WITH 80MG EVERY THIRD DAY.
     Route: 048
  18. PREDNISONE [Concomitant]
     Dosage: DOSING REGIMEN REPORTED AS QOD.
     Route: 048
  19. ACCUTANE [Suspect]
     Dosage: 40MG ONCE DAILY ALTERNATING WITH 80MG EVERY THIRD DAY.
     Route: 048
     Dates: start: 20030902, end: 20030930
  20. SPECTAZOLE [Concomitant]
     Indication: CHEILITIS
     Route: 061
  21. HIBICLENS [Concomitant]
     Dosage: DOSING REGIMEN REPORTED AS QD TO UNDERARMS.
     Route: 061
  22. DIPROLENE [Concomitant]
     Indication: LIP DISORDER
     Dosage: APPLIED TO LIPS.
     Route: 061
  23. ACCUTANE [Suspect]
     Route: 048
     Dates: start: 20001211, end: 20010201
  24. ACCUTANE [Suspect]
     Dosage: 05 FEBRUARY 2001: NOTED PATIENT IS ON ACCUTANE.
     Route: 048

REACTIONS (37)
  - SUICIDAL IDEATION [None]
  - LEUKOCYTOCLASTIC VASCULITIS [None]
  - INTESTINAL OBSTRUCTION [None]
  - ANXIETY [None]
  - PNEUMONIA [None]
  - INFLAMMATORY BOWEL DISEASE [None]
  - PEPTIC ULCER [None]
  - ONYCHOMYCOSIS [None]
  - BACK PAIN [None]
  - OCULAR HYPERAEMIA [None]
  - PLEURISY [None]
  - BRONCHITIS [None]
  - HAEMANGIOMA [None]
  - LIP DRY [None]
  - EPISTAXIS [None]
  - DRY EYE [None]
  - COLITIS [None]
  - ARTHRITIS [None]
  - TREMOR [None]
  - FOLLICULITIS [None]
  - VIRAL PHARYNGITIS [None]
  - GASTROENTERITIS VIRAL [None]
  - ARTHRALGIA [None]
  - CROHN'S DISEASE [None]
  - NAIL DISORDER [None]
  - DYSPEPSIA [None]
  - DRY SKIN [None]
  - COLITIS ULCERATIVE [None]
  - CHEILITIS [None]
  - CLOSTRIDIUM TEST [None]
  - ECZEMA [None]
  - PROCTITIS [None]
  - VOMITING [None]
  - DEPRESSION [None]
  - RIB FRACTURE [None]
  - VISUAL ACUITY REDUCED [None]
  - ASTEATOSIS [None]
